FAERS Safety Report 7912534-3 (Version None)
Quarter: 2011Q4

REPORT INFORMATION
  Report Type: 
  Country: None (occurrence: None)
  Receive Date: 20111114
  Receipt Date: 20111109
  Transmission Date: 20120403
  Serious: No
  Sender: FDA-Public Use
  Company Number: US-PFIZER INC-2011275358

PATIENT
  Sex: Male

DRUGS (2)
  1. PRISTIQ [Suspect]
     Dosage: UNK
  2. EFFEXOR [Suspect]
     Dosage: UNK

REACTIONS (5)
  - MOOD ALTERED [None]
  - YAWNING [None]
  - MICTURITION DISORDER [None]
  - EJACULATION DELAYED [None]
  - MUSCLE TIGHTNESS [None]
